FAERS Safety Report 4580463-1 (Version None)
Quarter: 2005Q1

REPORT INFORMATION
  Report Type: 
  Country: None (occurrence: None)
  Receive Date: 20050214
  Receipt Date: 20040202
  Transmission Date: 20050727
  Serious: Yes (Other)
  Sender: FDA-Public Use
  Company Number: US-GLAXOSMITHKLINE-A0496083A

PATIENT
  Age: 34 Year
  Sex: Male

DRUGS (2)
  1. LAMICTAL [Suspect]
     Indication: BIPOLAR DISORDER
     Dosage: 25MG AT NIGHT
     Route: 048
     Dates: start: 20040128
  2. RANITIDINE [Concomitant]
     Dates: start: 20040129

REACTIONS (1)
  - BLOOD BILIRUBIN INCREASED [None]
